FAERS Safety Report 6575675-1 (Version None)
Quarter: 2010Q1

REPORT INFORMATION
  Report Type: 
  Country: None (occurrence: None)
  Receive Date: 20100209
  Receipt Date: 20100204
  Transmission Date: 20100710
  Serious: Yes (Hospitalization)
  Sender: FDA-Public Use
  Company Number: AU-MERCK-1002USA00716

PATIENT
  Age: 69 Year
  Sex: Female
  Weight: 104 kg

DRUGS (2)
  1. JANUVIA [Suspect]
     Indication: DIABETES MELLITUS
     Route: 048
     Dates: start: 20090807, end: 20090807
  2. IRBESARTAN [Concomitant]
     Route: 065

REACTIONS (3)
  - ERYTHEMA [None]
  - HYPOAESTHESIA ORAL [None]
  - URTICARIA [None]
